FAERS Safety Report 4339421-4 (Version None)
Quarter: 2004Q2

REPORT INFORMATION
  Report Type: 
  Country: None (occurrence: None)
  Receive Date: 20040412
  Receipt Date: 20040331
  Transmission Date: 20050107
  Serious: Yes (Hospitalization)
  Sender: FDA-Public Use
  Company Number: GB-JNJFOC-20040400006

PATIENT
  Age: 59 Year
  Sex: Female

DRUGS (9)
  1. REMICADE [Suspect]
     Indication: RHEUMATOID ARTHRITIS
     Dosage: 245 MG, INTRAVENOUS
     Route: 042
     Dates: start: 20020614
  2. TENOXICAM (TENOXICAM) [Concomitant]
  3. RANITIDINE [Concomitant]
  4. CALCICHEW (CALCIUM CARBONATE) [Concomitant]
  5. FUROSEMIDE [Concomitant]
  6. PREDNISOLONE [Concomitant]
  7. REMEDEINE (REMEDEINE) [Concomitant]
  8. METHOTREXATE [Concomitant]
  9. FOLIC ACID [Concomitant]

REACTIONS (2)
  - RIB FRACTURE [None]
  - UPPER LIMB FRACTURE [None]
